FAERS Safety Report 6345255-1 (Version None)
Quarter: 2009Q3

REPORT INFORMATION
  Report Type: 
  Country: None (occurrence: None)
  Receive Date: 20090909
  Receipt Date: 20090901
  Transmission Date: 20100115
  Serious: Yes (Other)
  Sender: FDA-Public Use
  Company Number: PHHY2009BR37238

PATIENT
  Age: 94 Year
  Sex: Female

DRUGS (1)
  1. SLOW-K [Suspect]
     Dosage: 600 MG, UNK

REACTIONS (2)
  - ANAL HAEMORRHAGE [None]
  - HAEMORRHOIDS [None]
